FAERS Safety Report 24405177 (Version 1)
Quarter: 2024Q4

REPORT INFORMATION
  Report Type: Spontaneous
  Country: US (occurrence: US)
  Receive Date: 20241007
  Receipt Date: 20241007
  Transmission Date: 20250114
  Serious: Yes (Life-Threatening, Hospitalization, Other)
  Sender: DR REDDYS
  Company Number: US-MLMSERVICE-20240930-PI205635-00175-1

PATIENT
  Age: 31 Year
  Sex: Female

DRUGS (1)
  1. HEPARIN [Suspect]
     Active Substance: HEPARIN SODIUM
     Indication: Jugular vein thrombosis

REACTIONS (3)
  - Retroperitoneal haematoma [Unknown]
  - Pulseless electrical activity [Recovered/Resolved]
  - Cardiac arrest [Recovered/Resolved]
